FAERS Safety Report 25064376 (Version 1)
Quarter: 2025Q1

REPORT INFORMATION
  Report Type: Spontaneous
  Country: US (occurrence: US)
  Receive Date: 20250311
  Receipt Date: 20250311
  Transmission Date: 20250409
  Serious: No
  Sender: UROGEN PHARMA
  Company Number: US-UROGEN PHARMA LTD.-2025-UGN-000006

PATIENT

DRUGS (5)
  1. JELMYTO [Suspect]
     Active Substance: MITOMYCIN
     Indication: Transitional cell cancer of the renal pelvis and ureter
     Dosage: 6 MILLILITER, ONCE A WEEK (INSTILLATION)
  2. JELMYTO [Suspect]
     Active Substance: MITOMYCIN
     Dosage: 6 MILLILITER, ONCE A WEEK (INSTILLATION)
  3. JELMYTO [Suspect]
     Active Substance: MITOMYCIN
     Dosage: 6 MILLILITER, ONCE A WEEK, (INSTILLATION)
     Dates: start: 20250102, end: 20250102
  4. JELMYTO [Suspect]
     Active Substance: MITOMYCIN
     Dosage: 6 MILLILITER, ONCE A WEEK, (INSTILLATION)
     Dates: start: 20250109, end: 20250109
  5. JELMYTO [Suspect]
     Active Substance: MITOMYCIN
     Dosage: 6 MILLILITER, ONCE A WEEK, (INSTILLATION)
     Dates: start: 20250116, end: 20250116

REACTIONS (2)
  - Haematuria [Unknown]
  - Rash [Unknown]

NARRATIVE: CASE EVENT DATE: 20250117
